FAERS Safety Report 9057214 (Version 1)
Quarter: 2013Q1

REPORT INFORMATION
  Report Type: Report from Study
  Country: US (occurrence: US)
  Receive Date: 20130131
  Receipt Date: 20130131
  Transmission Date: 20140127
  Serious: Yes (Other)
  Sender: FDA-Public Use
  Company Number: US-PURDUE-USA-2013-0097914

PATIENT
  Age: 57 None
  Sex: Female

DRUGS (2)
  1. OXYCONTIN (NDA 22-272) [Suspect]
     Indication: PRODUCT USED FOR UNKNOWN INDICATION
     Dosage: 20 MG, Q12H
     Route: 048
  2. CIPROFLOXACIN [Concomitant]
     Indication: UPPER RESPIRATORY TRACT INFECTION

REACTIONS (5)
  - Pneumonia [Unknown]
  - Rib fracture [Unknown]
  - Cough [Unknown]
  - Upper respiratory tract infection [Unknown]
  - Musculoskeletal chest pain [Not Recovered/Not Resolved]
